FAERS Safety Report 4409421-4 (Version None)
Quarter: 2004Q3

REPORT INFORMATION
  Report Type: 
  Country: None (occurrence: None)
  Receive Date: 20040727
  Receipt Date: 20040727
  Transmission Date: 20050211
  Serious: Yes (Hospitalization, Other)
  Sender: FDA-Public Use
  Company Number: None

PATIENT
  Age: 77 Year
  Sex: Male
  Weight: 78.9259 kg

DRUGS (11)
  1. WARFARIN SODIUM [Suspect]
     Indication: ANTICOAGULANT THERAPY
     Dosage: 2 MG PO DAILY/CHRONIC
     Route: 048
  2. ALTACE [Concomitant]
  3. NORVASC [Concomitant]
  4. LASIX [Concomitant]
  5. KCL TAB [Concomitant]
  6. COREG [Concomitant]
  7. LIPITOR [Concomitant]
  8. IRON [Concomitant]
  9. FLOMAX [Concomitant]
  10. SENOKOT [Concomitant]
  11. NITROGLYCERIN [Concomitant]

REACTIONS (3)
  - HAEMATURIA [None]
  - HAEMOGLOBIN DECREASED [None]
  - THROMBOSIS [None]
